FAERS Safety Report 5496982-X (Version None)
Quarter: 2007Q4

REPORT INFORMATION
  Report Type: 
  Country: None (occurrence: None)
  Receive Date: 20071023
  Receipt Date: 20071009
  Transmission Date: 20080405
  Serious: Yes (Death, Hospitalization)
  Sender: FDA-Public Use
  Company Number: 2007P1000549

PATIENT
  Age: 4 Year
  Weight: 16 kg

DRUGS (1)
  1. BUSULFAN (BUSULFAN) [Suspect]
     Indication: STEM CELL TRANSPLANT
     Dosage: 4.4 MG/KG; QD; IV
     Route: 042
     Dates: start: 20070620, end: 20070623

REACTIONS (12)
  - ANOREXIA [None]
  - COAGULOPATHY [None]
  - DIARRHOEA [None]
  - DISSEMINATED INTRAVASCULAR COAGULATION [None]
  - FEBRILE NEUTROPENIA [None]
  - HAEMATEMESIS [None]
  - MALAISE [None]
  - MULTI-ORGAN FAILURE [None]
  - SHOCK [None]
  - STOMATITIS [None]
  - UPPER GASTROINTESTINAL HAEMORRHAGE [None]
  - VENOOCCLUSIVE LIVER DISEASE [None]
